FAERS Safety Report 6998412-5 (Version None)
Quarter: 2010Q3

REPORT INFORMATION
  Report Type: 
  Country: None (occurrence: None)
  Receive Date: 20100920
  Receipt Date: 20100908
  Transmission Date: 20110219
  Serious: Yes (Other)
  Sender: FDA-Public Use
  Company Number: CA-JNJFOC-20100903832

PATIENT
  Sex: Female
  Weight: 33.5 kg

DRUGS (1)
  1. REMICADE [Suspect]
     Indication: POUCHITIS
     Route: 042

REACTIONS (6)
  - CHILLS [None]
  - HYPERTENSION [None]
  - HYPOTENSION [None]
  - INFUSION RELATED REACTION [None]
  - TREMOR [None]
  - VITAL FUNCTIONS ABNORMAL [None]
